FAERS Safety Report 5787933-9 (Version None)
Quarter: 2008Q2

REPORT INFORMATION
  Report Type: 
  Country: None (occurrence: None)
  Receive Date: 20080625
  Receipt Date: 20080623
  Transmission Date: 20081010
  Serious: Yes (Hospitalization)
  Sender: FDA-Public Use
  Company Number: B0523848B

PATIENT
  Sex: Female
  Weight: 59.5 kg

DRUGS (2)
  1. TOPOTECAN [Suspect]
     Dosage: 1.25MG THREE TIMES PER WEEK
     Route: 042
     Dates: start: 20080507, end: 20080601
  2. CARBOPLATIN [Suspect]
     Dosage: 540MG THREE TIMES PER WEEK
     Route: 042
     Dates: start: 20080507, end: 20080601

REACTIONS (3)
  - ANAPHYLACTIC REACTION [None]
  - DYSPNOEA [None]
  - RASH [None]
